FAERS Safety Report 9236507 (Version 2)
Quarter: 2013Q2

REPORT INFORMATION
  Report Type: Spontaneous
  Country: JP (occurrence: None)
  Receive Date: 20130415
  Receipt Date: 20130417
  Transmission Date: 20140414
  Serious: Yes (Hospitalization)
  Sender: FDA-Public Use
  Company Number: VAL_02275_2013

PATIENT
  Age: 82 Year
  Sex: Female

DRUGS (1)
  1. ROCALTROL [Suspect]
     Indication: OSTEOPOROSIS
     Dosage: (DF ORAL)
     Route: 048
     Dates: start: 2006

REACTIONS (8)
  - Gait disturbance [None]
  - Pain in extremity [None]
  - Femur fracture [None]
  - Fall [None]
  - Injury [None]
  - Limb deformity [None]
  - Bone density decreased [None]
  - Blood alkaline phosphatase decreased [None]
